FAERS Safety Report 21391044 (Version 1)
Quarter: 2022Q3

REPORT INFORMATION
  Report Type: Spontaneous
  Country: US (occurrence: None)
  Receive Date: 20220927
  Receipt Date: 20220927
  Transmission Date: 20221026
  Serious: Yes (Other)
  Sender: FDA-Public Use
  Company Number: None

PATIENT
  Age: 73 Year
  Sex: Male

DRUGS (1)
  1. AMIODARONE [Suspect]
     Active Substance: AMIODARONE

REACTIONS (4)
  - Pruritus [None]
  - Paraesthesia [None]
  - Paraesthesia oral [None]
  - Oral pruritus [None]

NARRATIVE: CASE EVENT DATE: 20220927
